FAERS Safety Report 9663494 (Version 2)
Quarter: 2013Q4

REPORT INFORMATION
  Report Type: Spontaneous
  Country: AR (occurrence: AR)
  Receive Date: 20131101
  Receipt Date: 20131219
  Transmission Date: 20140711
  Serious: Yes (Hospitalization, Other)
  Sender: FDA-Public Use
  Company Number: AR-AMGEN-ARGSP2013076568

PATIENT
  Age: 69 Year
  Sex: Male

DRUGS (3)
  1. ENBREL [Suspect]
     Indication: PSORIATIC ARTHROPATHY
     Dosage: 50 MG, WEEKLY
     Route: 065
     Dates: start: 20061111
  2. VILDAGLIPTIN [Concomitant]
     Dosage: 50/1000
  3. METFORMIN [Concomitant]
     Dosage: UNK

REACTIONS (7)
  - Bone disorder [Recovered/Resolved]
  - Carotid artery occlusion [Not Recovered/Not Resolved]
  - Cerebrovascular accident [Not Recovered/Not Resolved]
  - Fall [Recovered/Resolved]
  - Gait disturbance [Recovered/Resolved]
  - Tooth fracture [Not Recovered/Not Resolved]
  - Cerebral ischaemia [Not Recovered/Not Resolved]
